FAERS Safety Report 7011164-8 (Version None)
Quarter: 2010Q3

REPORT INFORMATION
  Report Type: 
  Country: None (occurrence: None)
  Receive Date: 20100922
  Receipt Date: 20100922
  Transmission Date: 20110219
  Serious: Yes (Hospitalization)
  Sender: FDA-Public Use
  Company Number: None

PATIENT
  Age: 49 Year
  Sex: Male
  Weight: 54.54 kg

DRUGS (1)
  1. ARICEPT [Suspect]
     Indication: DEMENTIA
     Dosage: 5 MG DAILY PO
     Route: 048
     Dates: start: 20080926, end: 20100603

REACTIONS (4)
  - BRADYCARDIA [None]
  - BRADYKINESIA [None]
  - HYPOTENSION [None]
  - SYNCOPE [None]
